FAERS Safety Report 9822444 (Version 1)
Quarter: 2014Q1

REPORT INFORMATION
  Report Type: Spontaneous
  Country: US (occurrence: US)
  Receive Date: 20140116
  Receipt Date: 20140116
  Transmission Date: 20141002
  Serious: Yes (Hospitalization)
  Sender: FDA-Public Use
  Company Number: US-ROCHE-1332226

PATIENT
  Age: 60 Year
  Sex: Female

DRUGS (4)
  1. AVASTIN [Suspect]
     Indication: PRODUCT USED FOR UNKNOWN INDICATION
     Route: 065
  2. 5-FU [Suspect]
     Indication: COLON CANCER METASTATIC
     Route: 065
  3. LEUCOVORIN [Suspect]
     Indication: COLON CANCER METASTATIC
     Route: 065
  4. OXALIPLATIN [Suspect]
     Indication: COLON CANCER METASTATIC
     Route: 065

REACTIONS (3)
  - Bacteraemia [Recovered/Resolved]
  - Renal failure acute [Not Recovered/Not Resolved]
  - Pneumonia [Recovered/Resolved]
